FAERS Safety Report 12964293 (Version 1)
Quarter: 2016Q4

REPORT INFORMATION
  Report Type: Spontaneous
  Country: US (occurrence: US)
  Receive Date: 20161122
  Receipt Date: 20161122
  Transmission Date: 20170207
  Serious: No
  Sender: FDA-Public Use
  Company Number: US-PFIZER INC-2016531418

PATIENT
  Sex: Female

DRUGS (1)
  1. PREMARIN [Suspect]
     Active Substance: ESTROGENS, CONJUGATED
     Dosage: UNK
     Dates: end: 201611

REACTIONS (4)
  - Anxiety [Unknown]
  - Panic attack [Unknown]
  - Intentional product use issue [Unknown]
  - Restlessness [Unknown]

NARRATIVE: CASE EVENT DATE: 201611
